FAERS Safety Report 17242592 (Version 1)
Quarter: 2020Q1

REPORT INFORMATION
  Report Type: Spontaneous
  Country: US (occurrence: US)
  Receive Date: 20200106
  Receipt Date: 20200106
  Transmission Date: 20200409
  Serious: Yes (Hospitalization)
  Sender: FDA-Public Use
  Company Number: None

PATIENT
  Age: 60 Year
  Sex: Male

DRUGS (13)
  1. VITAMIN D3 TAB 1000 UNIT [Concomitant]
  2. ANTACID CHW 500 MG [Concomitant]
  3. METRONIDAZOLE TAB 500 MG [Concomitant]
  4. FUROSEMIDE TAB 20 MG [Concomitant]
  5. TENOFOVIR TAB 300 MG [Concomitant]
     Active Substance: TENOFOVIR
  6. METOPROLOL SUC TAB 50 MG ER [Concomitant]
  7. FUROSEMIDE TAB 20 MG [Concomitant]
  8. SMOOTH LAX [Concomitant]
     Active Substance: POLYETHYLENE GLYCOL 3350
  9. AMOXICILLIN CAP 500 MG [Concomitant]
  10. PANTOPRAZOLE TAB 40 MG [Concomitant]
  11. PREDNISIONE TAB 20 MG [Concomitant]
  12. SPIRONOLACTONE TAB 25 MG [Concomitant]
  13. ENTECAVIR. [Suspect]
     Active Substance: ENTECAVIR
     Indication: PRODUCT USED FOR UNKNOWN INDICATION
     Route: 048
     Dates: start: 20191127

REACTIONS (1)
  - Therapy cessation [None]

NARRATIVE: CASE EVENT DATE: 20200102
